FAERS Safety Report 7531357-0 (Version None)
Quarter: 2011Q2

REPORT INFORMATION
  Report Type: 
  Country: None (occurrence: None)
  Receive Date: 20110608
  Receipt Date: 20110525
  Transmission Date: 20111010
  Serious: Yes (Hospitalization, Other)
  Sender: FDA-Public Use
  Company Number: PHEH2008US03140

PATIENT
  Sex: Male

DRUGS (75)
  1. AZOPT [Concomitant]
  2. CEPHALEXIN [Concomitant]
  3. INDOMETHACIN [Concomitant]
  4. QUESTRAN [Concomitant]
  5. VIOXX [Concomitant]
  6. VITAMIN E [Concomitant]
  7. MORPHINE SULFATE [Concomitant]
  8. FORTICAL /KOR/ [Concomitant]
  9. RITALIN [Concomitant]
  10. FLONASE [Concomitant]
  11. QUADRAMET [Concomitant]
  12. ZOLPIDEM [Concomitant]
  13. NORVASC [Concomitant]
  14. CHLORHEXIDINE GLUCONATE [Concomitant]
  15. DEXAMETHASONE [Concomitant]
     Dosage: UNK
     Route: 061
  16. FAMCICLOVIR [Concomitant]
  17. MULTI-VITAMINS [Concomitant]
  18. CIMETIDINE [Concomitant]
  19. VITAMIN B COMPLEX CAP [Concomitant]
  20. LORAZEPAM [Concomitant]
  21. ZOFRAN [Concomitant]
  22. AMBIEN [Concomitant]
  23. ARANESP [Concomitant]
  24. METHADONE HCL [Concomitant]
  25. SANDOSTATIN [Concomitant]
  26. VITAMIN B-12 [Concomitant]
     Dosage: 1000 MG, QMO
  27. PRILOSEC [Concomitant]
  28. ALLEGRA [Concomitant]
  29. COLCHICINE [Concomitant]
  30. IBUPROFEN [Concomitant]
  31. POTASSIUM CHLORIDE [Concomitant]
  32. ROCEPHIN [Concomitant]
  33. ZOVIRAX [Concomitant]
  34. PROVIGIL [Concomitant]
  35. LOMOTIL [Concomitant]
  36. PROTONIX [Concomitant]
  37. THORAZINE [Concomitant]
  38. BENTYL [Concomitant]
  39. ALLOPURINOL [Concomitant]
  40. ZOMETA [Suspect]
     Dosage: UNK, UNK
     Dates: start: 20030901, end: 20081201
  41. AMILORIDE HYDROCHLORIDE [Concomitant]
  42. CALCIUM WITH VITAMIN D [Concomitant]
  43. COMPAZINE [Concomitant]
  44. MIACALCIN [Concomitant]
  45. PROCRIT                            /00909301/ [Concomitant]
  46. CLINDAMYCIN [Concomitant]
  47. MS CONTIN [Concomitant]
  48. SANDOSTATIN LAR [Concomitant]
  49. CLARITIN [Concomitant]
  50. OXYCONTIN [Concomitant]
  51. INFLUENZA VACCINE [Concomitant]
     Dosage: UNK
     Dates: start: 20051001
  52. LOVAZA [Concomitant]
  53. LONOX [Concomitant]
  54. ANZEMET [Concomitant]
  55. MULTI-VITAMINS [Concomitant]
  56. AZITHROMYCIN [Concomitant]
  57. PEPCID AC [Concomitant]
  58. FOLVITE [Concomitant]
  59. NIACIN [Concomitant]
  60. VITAMIN B6 [Concomitant]
  61. NEURONTIN [Concomitant]
  62. COUMADIN [Concomitant]
  63. VANCOMYCIN [Concomitant]
  64. MEDROL [Concomitant]
  65. FOLIC ACID [Concomitant]
  66. LOVENOX [Concomitant]
  67. ZOLOFT [Concomitant]
  68. EPOGEN [Concomitant]
  69. ASCORBIC ACID [Concomitant]
  70. COENZYME Q10 [Concomitant]
  71. ZINC [Concomitant]
  72. SELENIUM [Concomitant]
  73. FLUCONAZOLE [Concomitant]
  74. LANSOPRAZOLE [Concomitant]
  75. DICYCLOMINE [Concomitant]

REACTIONS (100)
  - SUPERIOR VENA CAVA SYNDROME [None]
  - BONE MARROW OEDEMA [None]
  - GASTROOESOPHAGEAL REFLUX DISEASE [None]
  - DIZZINESS [None]
  - ABDOMINAL PAIN [None]
  - METABOLIC ENCEPHALOPATHY [None]
  - MALABSORPTION [None]
  - DYSPNOEA [None]
  - HAEMORRHAGE SUBCUTANEOUS [None]
  - OBSESSIVE-COMPULSIVE DISORDER [None]
  - PHIMOSIS [None]
  - CELLULITIS [None]
  - LYMPHADENOPATHY [None]
  - ATELECTASIS [None]
  - GAIT DISTURBANCE [None]
  - ANAEMIA OF MALIGNANT DISEASE [None]
  - MENTAL STATUS CHANGES [None]
  - LUNG CONSOLIDATION [None]
  - VENOUS THROMBOSIS [None]
  - HAEMATOCRIT DECREASED [None]
  - RHINITIS SEASONAL [None]
  - GOUT [None]
  - INFECTION [None]
  - ANXIETY [None]
  - RENAL FAILURE ACUTE [None]
  - OSTEOPOROSIS [None]
  - OSTEOPENIA [None]
  - OSTEOSCLEROSIS [None]
  - BONE PAIN [None]
  - DIARRHOEA [None]
  - BALANCE DISORDER [None]
  - NEUTROPENIA [None]
  - COUGH [None]
  - HYPOCALCAEMIA [None]
  - NEUTROPHIL COUNT DECREASED [None]
  - HYPERHIDROSIS [None]
  - COLLAPSE OF LUNG [None]
  - PAIN [None]
  - METASTASES TO BONE [None]
  - BONE LESION [None]
  - PLANTAR FASCIITIS [None]
  - CHONDROMALACIA [None]
  - VENOUS OCCLUSION [None]
  - HEPATIC LESION [None]
  - HAEMORRHOIDS [None]
  - HAEMOGLOBIN DECREASED [None]
  - INTRAOCULAR PRESSURE TEST ABNORMAL [None]
  - STRESS FRACTURE [None]
  - CARCINOID SYNDROME [None]
  - ENTHESOPATHY [None]
  - TENDON DISORDER [None]
  - EFFUSION [None]
  - HYPERTENSION [None]
  - PULMONARY GRANULOMA [None]
  - SCOLIOSIS [None]
  - NEUROENDOCRINE TUMOUR [None]
  - NEOPLASM MALIGNANT [None]
  - THROMBOCYTOPENIA [None]
  - VOMITING [None]
  - ANAEMIA [None]
  - CYANOSIS [None]
  - SMALL INTESTINAL OBSTRUCTION [None]
  - RASH GENERALISED [None]
  - PRURITUS [None]
  - FLUSHING [None]
  - CARCINOID TUMOUR OF THE SMALL BOWEL [None]
  - PLEURAL EFFUSION [None]
  - SCAR [None]
  - METASTASES TO SPINE [None]
  - CHOLELITHIASIS [None]
  - HYPOALBUMINAEMIA [None]
  - URETHRAL OBSTRUCTION [None]
  - METABOLIC ACIDOSIS [None]
  - HEADACHE [None]
  - ELECTROCARDIOGRAM QT PROLONGED [None]
  - BURNING MOUTH SYNDROME [None]
  - GINGIVAL PAIN [None]
  - INJURY [None]
  - PHYSICAL DISABILITY [None]
  - HAEMATURIA [None]
  - METASTASES TO THORAX [None]
  - FOOT FRACTURE [None]
  - LEUKOPENIA [None]
  - ARTHRALGIA [None]
  - PANCREATIC NEUROENDOCRINE TUMOUR METASTATIC [None]
  - DEHYDRATION [None]
  - DEPRESSION [None]
  - PANCYTOPENIA [None]
  - ANAEMIA VITAMIN B12 DEFICIENCY [None]
  - OEDEMA PERIPHERAL [None]
  - CHONDROCALCINOSIS PYROPHOSPHATE [None]
  - OSTEONECROSIS OF JAW [None]
  - EMOTIONAL DISTRESS [None]
  - METASTASES TO LIVER [None]
  - BILIARY DILATATION [None]
  - SYNOVIAL CYST [None]
  - MALNUTRITION [None]
  - HYPERCHLORAEMIA [None]
  - CONTUSION [None]
  - HEMIPARESIS [None]
